FAERS Safety Report 10758211 (Version 1)
Quarter: 2015Q1

REPORT INFORMATION
  Report Type: Spontaneous
  Country: US (occurrence: None)
  Receive Date: 20150202
  Receipt Date: 20150202
  Transmission Date: 20150721
  Serious: No
  Sender: FDA-Public Use
  Company Number: None

PATIENT
  Age: 69 Year
  Sex: Male
  Weight: 79.4 kg

DRUGS (2)
  1. VALSARTAN. [Suspect]
     Active Substance: VALSARTAN
     Indication: CARDIAC FAILURE CONGESTIVE
     Dosage: MG PO
     Route: 048
     Dates: start: 20100420, end: 20150127
  2. VALSARTAN. [Suspect]
     Active Substance: VALSARTAN
     Indication: HYPERTENSION
     Dosage: MG PO
     Route: 048
     Dates: start: 20100420, end: 20150127

REACTIONS (4)
  - Acute kidney injury [None]
  - Blood creatinine increased [None]
  - Blood potassium increased [None]
  - Blood urea increased [None]

NARRATIVE: CASE EVENT DATE: 20150126
